FAERS Safety Report 6027232-3 (Version None)
Quarter: 2009Q1

REPORT INFORMATION
  Report Type: 
  Country: None (occurrence: None)
  Receive Date: 20090105
  Receipt Date: 20081223
  Transmission Date: 20090719
  Serious: Yes (Other)
  Sender: FDA-Public Use
  Company Number: US-ELI_LILLY_AND_COMPANY-US200812003274

PATIENT
  Sex: Male
  Weight: 98.413 kg

DRUGS (8)
  1. BYETTA [Suspect]
     Indication: TYPE 2 DIABETES MELLITUS
     Dosage: UNK UG, UNK
     Route: 058
     Dates: start: 20070616
  2. AVAPRO [Concomitant]
  3. LIPITOR [Concomitant]
  4. TRICOR [Concomitant]
  5. HUMALOG MIX /01500801/ [Concomitant]
  6. METFORMIN [Concomitant]
  7. COREG [Concomitant]
  8. DEMADEX [Concomitant]

REACTIONS (2)
  - PANCREATITIS [None]
  - WEIGHT DECREASED [None]
